FAERS Safety Report 11738630 (Version 2)
Quarter: 2016Q1

REPORT INFORMATION
  Report Type: Spontaneous
  Country: US (occurrence: US)
  Receive Date: 20151113
  Receipt Date: 20160208
  Transmission Date: 20160525
  Serious: Yes (Other)
  Sender: FDA-Public Use
  Company Number: US-VERTEX PHARMACEUTICALS-2015-005129

PATIENT
  Sex: Male
  Weight: 88 kg

DRUGS (16)
  1. OYSCO [Concomitant]
     Dosage: 1 DF, BID
     Route: 048
  2. ALLEGRA [Concomitant]
     Active Substance: FEXOFENADINE HYDROCHLORIDE
     Indication: HYPERSENSITIVITY
     Dosage: 1 DF, BID
     Route: 048
  3. ZITHROMAX [Concomitant]
     Active Substance: AZITHROMYCIN DIHYDRATE
     Dosage: 1 DF EVERY MONDAY, WEDNESDAY AND FRIDAY
     Route: 048
  4. ALBUTEROL. [Concomitant]
     Active Substance: ALBUTEROL
     Indication: WHEEZING
     Dosage: 2 DF EVERY SIX HOURS
  5. CREON [Concomitant]
     Active Substance: PANCRELIPASE AMYLASE\PANCRELIPASE LIPASE\PANCRELIPASE PROTEASE
     Dosage: 6 WITH MEAL AND 3 WITH SNACKS
     Route: 048
  6. PULMOZYME [Concomitant]
     Active Substance: DORNASE ALFA
     Dosage: 2.5 MG, QD
     Route: 055
  7. ORKAMBI [Suspect]
     Active Substance: IVACAFTOR\LUMACAFTOR
     Indication: CYSTIC FIBROSIS
     Dosage: UNK
     Route: 048
     Dates: start: 20151002, end: 20151002
  8. CAYSTON [Concomitant]
     Active Substance: AZTREONAM
     Dosage: 1 DF, TID
     Route: 055
  9. XOPENEX [Concomitant]
     Active Substance: LEVALBUTEROL HYDROCHLORIDE
     Indication: WHEEZING
     Dosage: 3 ML EVERY SIX HOURS
     Route: 055
  10. SINGULAIR [Concomitant]
     Active Substance: MONTELUKAST SODIUM
     Dosage: 1 DF, QD
     Route: 048
  11. PRILOSEC [Concomitant]
     Active Substance: OMEPRAZOLE MAGNESIUM
     Dosage: 2 DF EVERY MORNING BEFORE BREAKFAST
     Route: 048
  12. VITAMIN K [Concomitant]
     Active Substance: PHYTONADIONE
  13. TOBI [Concomitant]
     Active Substance: TOBRAMYCIN
  14. MEPHYTON [Concomitant]
     Active Substance: PHYTONADIONE
     Dosage: 2 DF EVERY MONDAY, WEDNESDAY ADN FRIDAY
     Route: 048
  15. CHOLECALCIFEROL [Concomitant]
     Active Substance: CHOLECALCIFEROL
     Dosage: 1 DF, BID
     Route: 048
  16. MULTIPLE VITAMINS WITH MINERALS [Concomitant]
     Dosage: 1 DF, BID
     Route: 048

REACTIONS (4)
  - Weight decreased [Unknown]
  - Hot flush [Unknown]
  - Productive cough [Unknown]
  - Retinal detachment [Recovering/Resolving]
